FAERS Safety Report 25574865 (Version 1)
Quarter: 2025Q3

REPORT INFORMATION
  Report Type: Spontaneous
  Country: EU (occurrence: EU)
  Receive Date: 20250718
  Receipt Date: 20250718
  Transmission Date: 20251021
  Serious: Yes (Hospitalization)
  Sender: BAXTER
  Company Number: EU-BAXTER-2025BAX018230

PATIENT
  Age: 73 Year
  Sex: Female
  Weight: 93.5 kg

DRUGS (8)
  1. DOXORUBICIN [Suspect]
     Active Substance: DOXORUBICIN
     Indication: Fallopian tube cancer
     Dosage: 37.6 MG DAY 1 OF 28 DAY CYCLE, EVERY 4 WEEKS
     Route: 042
     Dates: start: 20250520, end: 20250617
  2. MIRVETUXIMAB SORAVTANSINE [Suspect]
     Active Substance: MIRVETUXIMAB SORAVTANSINE
     Indication: Fallopian tube cancer
     Route: 065
  3. BEVACIZUMAB [Suspect]
     Active Substance: BEVACIZUMAB
     Indication: Fallopian tube cancer
     Dosage: 943 MG D1, D15 OF 28-DAY CYCLE
     Route: 042
     Dates: start: 20250520, end: 20250617
  4. CARBOPLATIN [Suspect]
     Active Substance: CARBOPLATIN
     Indication: Fallopian tube cancer
     Dosage: 460 MG DAY 1 OF 28-DAY CYCLE
     Route: 042
     Dates: start: 20250520, end: 20250617
  5. METOPROLOL SUCCINATE [Concomitant]
     Active Substance: METOPROLOL SUCCINATE
     Indication: Hypertension
     Dosage: 100 MG, EVERY1 DAY
     Route: 065
     Dates: start: 2014
  6. DIOSMIN\HESPERIDIN [Concomitant]
     Active Substance: DIOSMIN\HESPERIDIN
     Indication: Peripheral venous disease
     Dosage: 1000 MG, EVERY 1 DAYS
     Route: 065
     Dates: start: 2014
  7. CIPRALEX [Concomitant]
     Active Substance: ESCITALOPRAM OXALATE
     Indication: Depression
     Dosage: 10 MG, EVERY 1 DAYS
     Route: 065
     Dates: start: 2023
  8. TELMISARTAN [Concomitant]
     Active Substance: TELMISARTAN
     Indication: Hypertension
     Dosage: 40 MG, EVERY 1 DAYS
     Route: 065
     Dates: start: 2014

REACTIONS (2)
  - Tachypnoea [Recovered/Resolved]
  - Dyspnoea [Recovered/Resolved]

NARRATIVE: CASE EVENT DATE: 20250701
